FAERS Safety Report 25282571 (Version 1)
Quarter: 2025Q2

REPORT INFORMATION
  Report Type: Spontaneous
  Country: FR (occurrence: FR)
  Receive Date: 20250508
  Receipt Date: 20250508
  Transmission Date: 20250716
  Serious: Yes (Hospitalization, Other)
  Sender: AUROBINDO
  Company Number: FR-AFSSAPS-PO2025000433

PATIENT
  Age: 36 Year
  Sex: Female
  Weight: 77 kg

DRUGS (1)
  1. LAMOTRIGINE [Suspect]
     Active Substance: LAMOTRIGINE
     Indication: Epilepsy
     Dosage: 200 MILLIGRAM, ONCE A DAY
     Route: 048
     Dates: start: 1995

REACTIONS (3)
  - Epilepsy [Recovered/Resolved]
  - Drug ineffective [Recovered/Resolved]
  - Maternal exposure during pregnancy [Recovered/Resolved]

NARRATIVE: CASE EVENT DATE: 20240513
